FAERS Safety Report 10025047 (Version 1)
Quarter: 2014Q1

REPORT INFORMATION
  Report Type: Report from Study
  Country: None (occurrence: None)
  Receive Date: 20140207
  Receipt Date: 20140207
  Transmission Date: 20141002
  Serious: Yes (Hospitalization, Other)
  Sender: FDA-Public Use
  Company Number: ADR-2010-9104

PATIENT
  Age: 33 Year
  Sex: Female

DRUGS (7)
  1. GABALON INTRATHECAL (BACLOFEN INJECTION) [Suspect]
     Indication: MUSCLE SPASTICITY
     Dosage: 200 MCG, DAILY, INTRATH
  2. GABALON [Concomitant]
  3. TEMELIN [Concomitant]
  4. PREDONINE [Concomitant]
  5. GASTER [Concomitant]
  6. GLAKAY [Concomitant]
  7. ALOSENN [Concomitant]

REACTIONS (5)
  - Pyrexia [None]
  - Cholecystitis [None]
  - Hypoxic-ischaemic encephalopathy [None]
  - Systemic lupus erythematosus [None]
  - Gastritis [None]
